FAERS Safety Report 7416088-X (Version None)
Quarter: 2011Q2

REPORT INFORMATION
  Report Type: 
  Country: None (occurrence: None)
  Receive Date: 20110414
  Receipt Date: 20110406
  Transmission Date: 20111010
  Serious: Yes (Hospitalization)
  Sender: FDA-Public Use
  Company Number: BR-ROCHE-770085

PATIENT
  Sex: Female
  Weight: 58 kg

DRUGS (8)
  1. FOLIC ACID [Concomitant]
  2. ACTEMRA [Suspect]
     Route: 042
     Dates: start: 20100615, end: 20100615
  3. TORAGESIC [Concomitant]
     Indication: PAIN
  4. ACTEMRA [Suspect]
     Route: 042
     Dates: start: 20100801, end: 20100801
  5. ACTEMRA [Suspect]
     Indication: RHEUMATOID ARTHRITIS
     Route: 042
     Dates: start: 20100515
  6. PHENERGAN [Suspect]
     Dosage: START DATE, STOP DATE, DOSE, ROUTE AND FREQUENCY NOT PROVIDED.
     Route: 065
  7. METHOTREXATE [Concomitant]
     Dosage: FREQUENCY REPORTED AS 5 TABLETS PER WEEK.
  8. ACTEMRA [Suspect]
     Route: 042
     Dates: start: 20100715, end: 20100715

REACTIONS (4)
  - RHEUMATOID ARTHRITIS [None]
  - BLOOD PRESSURE FLUCTUATION [None]
  - HYPERSENSITIVITY [None]
  - RASH MACULAR [None]
